FAERS Safety Report 19006322 (Version 2)
Quarter: 2021Q2

REPORT INFORMATION
  Report Type: Report from Study
  Country: US (occurrence: US)
  Receive Date: 20210315
  Receipt Date: 20210409
  Transmission Date: 20210717
  Serious: Yes (Death, Other)
  Sender: FDA-Public Use
  Company Number: US-ACADIA PHARMACEUTICALS INC.-ACA-2021-PIM-000932

PATIENT
  Sex: Female

DRUGS (3)
  1. NUPLAZID [Suspect]
     Active Substance: PIMAVANSERIN TARTRATE
     Indication: PARKINSON^S DISEASE
     Dosage: 34 MILLIGRAM, QD
     Route: 048
     Dates: end: 20201112
  2. SINEMET [Concomitant]
     Active Substance: CARBIDOPA\LEVODOPA
     Dosage: 10/100
  3. AZILECT [Concomitant]
     Active Substance: RASAGILINE MESYLATE
     Dosage: 1 MILLIGRAM, QD

REACTIONS (1)
  - COVID-19 [Recovered/Resolved]
